FAERS Safety Report 9958889 (Version 1)
Quarter: 2014Q1

REPORT INFORMATION
  Report Type: Report from Study
  Country: US (occurrence: US)
  Receive Date: 20140305
  Receipt Date: 20140305
  Transmission Date: 20141002
  Serious: No
  Sender: FDA-Public Use
  Company Number: US-ABBVIE-13P-163-1103363-00

PATIENT
  Age: 61 Year
  Sex: Female

DRUGS (1)
  1. HUMIRA [Suspect]
     Indication: COLITIS ULCERATIVE
     Dates: start: 20121120

REACTIONS (4)
  - Gastrointestinal pain [Unknown]
  - Colitis ulcerative [Recovering/Resolving]
  - Dehydration [Unknown]
  - Dyspnoea [Unknown]
